FAERS Safety Report 9240128 (Version 1)
Quarter: 2013Q2

REPORT INFORMATION
  Report Type: Spontaneous
  Country: US (occurrence: None)
  Receive Date: 20130418
  Receipt Date: 20130418
  Transmission Date: 20140414
  Serious: Yes (Hospitalization)
  Sender: FDA-Public Use
  Company Number: None

PATIENT
  Sex: Female
  Weight: 68.04 kg

DRUGS (2)
  1. LEVOFLOXACIN [Suspect]
     Indication: SINUS DISORDER
     Route: 048
     Dates: start: 20130305
  2. LEVOFLOXACIN [Suspect]
     Indication: PNEUMONIA
     Route: 048
     Dates: start: 20130305

REACTIONS (2)
  - Dyspnoea [None]
  - Tremor [None]
